FAERS Safety Report 24669148 (Version 3)
Quarter: 2024Q4

REPORT INFORMATION
  Report Type: Spontaneous
  Country: NL (occurrence: NL)
  Receive Date: 20241127
  Receipt Date: 20241209
  Transmission Date: 20250114
  Serious: Yes (Hospitalization, Other)
  Sender: TERSERA THERAPEUTICS
  Company Number: NL-AstraZeneca-CH-00747064AM

PATIENT

DRUGS (3)
  1. GOSERELIN [Suspect]
     Active Substance: GOSERELIN
     Indication: Menopause
     Dosage: UNK MILLIGRAM
     Route: 058
     Dates: start: 20241004
  2. ZOLADEX [Suspect]
     Active Substance: GOSERELIN ACETATE
     Indication: Menopause
     Dosage: UNK
     Route: 065
  3. PREDNISONE [Concomitant]
     Active Substance: PREDNISONE
     Indication: Product used for unknown indication
     Dosage: UNK
     Route: 065

REACTIONS (16)
  - Illness [Unknown]
  - Fluid retention [Unknown]
  - Secretion discharge [Unknown]
  - Peripheral swelling [Unknown]
  - Gait disturbance [Unknown]
  - Transcranial magnetic stimulation [Unknown]
  - Nasopharyngitis [Unknown]
  - Oral discomfort [Unknown]
  - Chills [Unknown]
  - Pyrexia [Unknown]
  - Abdominal discomfort [Unknown]
  - Dizziness [Unknown]
  - Insomnia [Unknown]
  - Hot flush [Unknown]
  - Headache [Unknown]
  - Dyspnoea [Unknown]
